FAERS Safety Report 17519877 (Version 2)
Quarter: 2020Q1

REPORT INFORMATION
  Report Type: Report from Study
  Country: AR (occurrence: AR)
  Receive Date: 20200310
  Receipt Date: 20200316
  Transmission Date: 20200409
  Serious: Yes (Life-Threatening, Hospitalization, Other)
  Sender: FDA-Public Use
  Company Number: NVSC2020AR017689

PATIENT
  Age: 41 Year
  Sex: Female

DRUGS (8)
  1. REVOLADE [Suspect]
     Active Substance: ELTROMBOPAG
     Indication: IMMUNE THROMBOCYTOPENIC PURPURA
     Dosage: 2 DF, QD, TABLET
     Route: 065
     Dates: start: 20190407
  2. REVOLADE [Suspect]
     Active Substance: ELTROMBOPAG
     Dosage: 3 DF, QD (75 MG)
     Route: 065
     Dates: start: 202001
  3. METFORMIN [Suspect]
     Active Substance: METFORMIN HYDROCHLORIDE
     Dosage: 850 MG, Q12H
     Route: 065
  4. REVOLADE [Suspect]
     Active Substance: ELTROMBOPAG
     Dosage: 3 DF, QD, TABLET
     Route: 065
     Dates: start: 20200108
  5. METFORMIN [Suspect]
     Active Substance: METFORMIN HYDROCHLORIDE
     Indication: PRODUCT USED FOR UNKNOWN INDICATION
     Dosage: 850 MG, QD
     Route: 065
  6. ENALAPRIL [Concomitant]
     Active Substance: ENALAPRIL
     Indication: PRODUCT USED FOR UNKNOWN INDICATION
     Dosage: 10 MG, Q12H
     Route: 065
  7. REVOLADE [Suspect]
     Active Substance: ELTROMBOPAG
     Dosage: 2 DF, QD (50 MG)
     Route: 065
     Dates: start: 202001
  8. REVOLADE [Suspect]
     Active Substance: ELTROMBOPAG
     Dosage: 50 MG, QD
     Route: 065
     Dates: start: 20190807

REACTIONS (15)
  - Stomatitis [Recovered/Resolved]
  - Haematoma [Not Recovered/Not Resolved]
  - Vaginal haemorrhage [Recovering/Resolving]
  - Rash erythematous [Not Recovered/Not Resolved]
  - Thrombosis [Unknown]
  - Vulvovaginal dryness [Recovering/Resolving]
  - Oropharyngeal plaque [Not Recovered/Not Resolved]
  - Pain [Recovering/Resolving]
  - Oral pain [Recovered/Resolved]
  - Inflammation [Recovering/Resolving]
  - Haemoglobin decreased [Recovered/Resolved]
  - Inflammation [Recovered/Resolved]
  - Platelet count decreased [Recovering/Resolving]
  - Vein rupture [Unknown]
  - Choking [Unknown]

NARRATIVE: CASE EVENT DATE: 201912
